FAERS Safety Report 10102058 (Version 1)
Quarter: 2014Q2

REPORT INFORMATION
  Report Type: Spontaneous
  Country: US (occurrence: US)
  Receive Date: 20140424
  Receipt Date: 20140424
  Transmission Date: 20141212
  Serious: Yes (Other)
  Sender: FDA-Public Use
  Company Number: US-BAYER-2014-059690

PATIENT
  Age: 31 Year
  Sex: Female
  Weight: 97.51 kg

DRUGS (8)
  1. YAZ [Suspect]
  2. BEYAZ [Suspect]
  3. NASONEX [Concomitant]
     Dosage: 50 MCG
  4. ATENOLOL [Concomitant]
     Indication: HYPERTENSION
     Dosage: 25 MG, UNK
  5. DYAZIDE [Concomitant]
     Dosage: 37.5-25 MG
  6. TRIAM CO [Concomitant]
     Dosage: 37.5-25 MG
  7. ROXICET [Concomitant]
     Dosage: 5-325 MG
     Dates: start: 20110107
  8. SERTRALINE [Concomitant]
     Dosage: 25 MG, UNK

REACTIONS (1)
  - Deep vein thrombosis [Recovering/Resolving]
